FAERS Safety Report 19877756 (Version 1)
Quarter: 2021Q3

REPORT INFORMATION
  Report Type: Report from Study
  Country: US (occurrence: US)
  Receive Date: 20210923
  Receipt Date: 20210923
  Transmission Date: 20211014
  Serious: Yes (Hospitalization)
  Sender: FDA-Public Use
  Company Number: US-TAKEDA-2021TUS053095

PATIENT
  Sex: Male
  Weight: 90.7 kg

DRUGS (15)
  1. LMX [Concomitant]
  2. FUROSEMIDE. [Concomitant]
     Active Substance: FUROSEMIDE
  3. EPINEPHRINE. [Concomitant]
     Active Substance: EPINEPHRINE
  4. ELIQUIS [Concomitant]
     Active Substance: APIXABAN
  5. PANTOPRAZOLE [Concomitant]
     Active Substance: PANTOPRAZOLE
  6. KINERET [Concomitant]
     Active Substance: ANAKINRA
  7. DIPHENHYDRAMINE. [Concomitant]
     Active Substance: DIPHENHYDRAMINE
  8. METOPROLOL. [Concomitant]
     Active Substance: METOPROLOL
  9. ACETAMINOPHEN. [Concomitant]
     Active Substance: ACETAMINOPHEN
  10. EPLERENONE. [Concomitant]
     Active Substance: EPLERENONE
  11. SIMVASTATIN. [Concomitant]
     Active Substance: SIMVASTATIN
  12. HUMAN IMMUNOGLOBULIN; HYALURONIDASE [Suspect]
     Active Substance: HUMAN IMMUNOGLOBULIN G\HYALURONIDASE RECOMBINANT HUMAN
     Indication: IMMUNODEFICIENCY COMMON VARIABLE
     Dosage: 50 GRAM, Q2WEEKS
     Route: 058
     Dates: start: 20160331
  13. NORMAL SALINE [Concomitant]
     Active Substance: SODIUM CHLORIDE
  14. FAMOTIDINE. [Concomitant]
     Active Substance: FAMOTIDINE
  15. ALBUMIN [Concomitant]
     Active Substance: ALBUMIN HUMAN

REACTIONS (2)
  - Blood potassium decreased [Unknown]
  - Weight decreased [Unknown]
